FAERS Safety Report 14026614 (Version 2)
Quarter: 2017Q4

REPORT INFORMATION
  Report Type: Spontaneous
  Country: US (occurrence: US)
  Receive Date: 20170929
  Receipt Date: 20171219
  Transmission Date: 20180321
  Serious: Yes (Other)
  Sender: FDA-Public Use
  Company Number: US-SAGE PRODUCTS, LLC-2028307

PATIENT

DRUGS (3)
  1. COMFORT BATH WASHCLOTH [Suspect]
     Active Substance: COSMETICS
     Route: 061
  2. COMFORT SHIELD BARRIER [Suspect]
     Active Substance: DIMETHICONE
     Route: 061
  3. CHLORHEXIDINE GLUCONATE. [Suspect]
     Active Substance: CHLORHEXIDINE GLUCONATE
     Indication: PREOPERATIVE CARE
     Route: 061

REACTIONS (1)
  - Bacterial infection [Recovered/Resolved]
